FAERS Safety Report 10252069 (Version 4)
Quarter: 2014Q4

REPORT INFORMATION
  Report Type: Spontaneous
  Country: FR (occurrence: FR)
  Receive Date: 20140623
  Receipt Date: 20141103
  Transmission Date: 20150528
  Serious: Yes (Other)
  Sender: FDA-Public Use
  Company Number: PHHY2014FR075662

PATIENT
  Age: 57 Year
  Sex: Female
  Weight: 45 kg

DRUGS (5)
  1. ACLASTA [Suspect]
     Active Substance: ZOLEDRONIC ACID
     Indication: OSTEOPOROSIS
  2. CALCIUM [Concomitant]
     Active Substance: CALCIUM
     Indication: PRODUCT USED FOR UNKNOWN INDICATION
     Route: 065
  3. ACLASTA [Suspect]
     Active Substance: ZOLEDRONIC ACID
     Indication: OSTEOPOROTIC FRACTURE
     Dosage: UNK
     Route: 042
     Dates: start: 20140529
  4. ASPEGIC [Suspect]
     Active Substance: ASPIRIN DL-LYSINE
     Indication: HEADACHE
     Dosage: 1000 MG, QD (EVENING)
     Route: 048
     Dates: start: 20140529
  5. ASPEGIC [Suspect]
     Active Substance: ASPIRIN DL-LYSINE
     Indication: CHILLS
     Dosage: 1000 MG, QD (MORNING)
     Route: 048
     Dates: start: 20140601

REACTIONS (30)
  - Toxic skin eruption [Recovered/Resolved]
  - Papule [Unknown]
  - Discomfort [Unknown]
  - Radius fracture [Unknown]
  - Loss of consciousness [Recovered/Resolved]
  - Malaise [Recovered/Resolved]
  - Arthropathy [Unknown]
  - Paraesthesia [Recovered/Resolved]
  - Sjogren^s syndrome [Unknown]
  - Rash scarlatiniform [Recovered/Resolved]
  - Cough [Not Recovered/Not Resolved]
  - Dyspnoea [Recovered/Resolved]
  - Pain [Unknown]
  - Joint swelling [Recovered/Resolved]
  - Rash [Recovered/Resolved]
  - Chest pain [Recovered/Resolved]
  - Gait disturbance [Not Recovered/Not Resolved]
  - Bronchospasm [Unknown]
  - Erythema [Recovered/Resolved]
  - Acne [Unknown]
  - Drug eruption [Unknown]
  - Pericardial disease [Unknown]
  - Eyelid oedema [Recovered/Resolved]
  - Aortic bruit [Unknown]
  - Pulmonary arterial hypertension [Unknown]
  - Chronic obstructive pulmonary disease [Unknown]
  - Fatigue [Recovered/Resolved]
  - Pyrexia [Recovered/Resolved]
  - Chills [Not Recovered/Not Resolved]
  - Headache [Unknown]

NARRATIVE: CASE EVENT DATE: 201406
